FAERS Safety Report 7430840-6 (Version None)
Quarter: 2011Q2

REPORT INFORMATION
  Report Type: 
  Country: None (occurrence: None)
  Receive Date: 20110421
  Receipt Date: 20110412
  Transmission Date: 20111010
  Serious: Yes (Hospitalization)
  Sender: FDA-Public Use
  Company Number: US-MILLENNIUM PHARMACEUTICALS, INC.-2011-01071

PATIENT
  Sex: Female
  Weight: 69.206 kg

DRUGS (4)
  1. NEUPOGEN [Suspect]
     Indication: PRODUCT USED FOR UNKNOWN INDICATION
     Dosage: UNK
     Dates: start: 20100829
  2. VELCADE [Suspect]
     Indication: MULTIPLE MYELOMA
     Dosage: 2.1 MG, CYCLIC
     Route: 042
     Dates: start: 20100302, end: 20100716
  3. DEXAMETHASONE [Concomitant]
     Indication: MULTIPLE MYELOMA
  4. CYTOXAN [Concomitant]
     Indication: MULTIPLE MYELOMA
     Dosage: UNK
     Dates: start: 20100820

REACTIONS (2)
  - NECK PAIN [None]
  - BACK PAIN [None]
